FAERS Safety Report 23426307 (Version 2)
Quarter: 2024Q2

REPORT INFORMATION
  Report Type: Report from Study
  Country: US (occurrence: US)
  Receive Date: 20240122
  Receipt Date: 20240402
  Transmission Date: 20240715
  Serious: Yes (Hospitalization)
  Sender: FDA-Public Use
  Company Number: US-SANDOZ-SDZ2023US057179

PATIENT
  Sex: Female
  Weight: 84.807 kg

DRUGS (8)
  1. TREPROSTINIL [Suspect]
     Active Substance: TREPROSTINIL
     Dosage: 59 NG/KG/ MIN
     Route: 042
     Dates: start: 20231114
  2. TREPROSTINIL [Suspect]
     Active Substance: TREPROSTINIL
     Dosage: 55 NG/KG/ MIN
     Route: 042
     Dates: start: 20231114
  3. TREPROSTINIL [Suspect]
     Active Substance: TREPROSTINIL
     Dosage: 59 NG/KG/MIN
     Route: 042
     Dates: start: 20231114
  4. TREPROSTINIL [Suspect]
     Active Substance: TREPROSTINIL
     Indication: Pulmonary arterial hypertension
     Dosage: UNK UNK, CONT
     Route: 042
     Dates: start: 20231114
  5. ADEMPAS [Concomitant]
     Active Substance: RIOCIGUAT
     Indication: Product used for unknown indication
     Dosage: UNK
     Route: 065
  6. OPSUMIT [Concomitant]
     Active Substance: MACITENTAN
     Indication: Product used for unknown indication
     Dosage: UNK
     Route: 065
  7. TADALAFIL [Concomitant]
     Active Substance: TADALAFIL
     Indication: Product used for unknown indication
     Dosage: UNK
     Route: 065
  8. TREPROSTINIL [Concomitant]
     Active Substance: TREPROSTINIL
     Indication: Product used for unknown indication
     Dosage: UNK
     Route: 065

REACTIONS (12)
  - Fluid retention [Recovered/Resolved]
  - Hypersensitivity [Unknown]
  - Face oedema [Unknown]
  - Eyelid oedema [Unknown]
  - Catheter site discharge [Unknown]
  - Rash [Not Recovered/Not Resolved]
  - Diarrhoea [Unknown]
  - Pruritus [Unknown]
  - Injection site haemorrhage [Unknown]
  - Injection site warmth [Unknown]
  - Injection site pain [Unknown]
  - Injection site erythema [Unknown]
